FAERS Safety Report 5477883-X (Version None)
Quarter: 2007Q4

REPORT INFORMATION
  Report Type: 
  Country: None (occurrence: None)
  Receive Date: 20071004
  Receipt Date: 20071001
  Transmission Date: 20080405
  Serious: Yes (Other)
  Sender: FDA-Public Use
  Company Number: JP-MERCK-0605USA02440

PATIENT
  Age: 77 Year
  Sex: Female

DRUGS (8)
  1. SINGULAIR [Suspect]
     Indication: ASTHMA
     Route: 048
     Dates: start: 20060325, end: 20060403
  2. SINGULAIR [Suspect]
     Route: 048
     Dates: start: 20050101
  3. OLMETEC [Concomitant]
     Indication: HYPERTENSION
     Route: 048
  4. GLIMICRON [Concomitant]
     Indication: DIABETES MELLITUS
     Route: 048
  5. PROBUCOL [Concomitant]
     Indication: HYPERLIPIDAEMIA
     Route: 048
  6. NIVADIL [Concomitant]
     Route: 048
  7. OPALMON [Concomitant]
     Route: 048
  8. ZYRTEC [Concomitant]
     Route: 048

REACTIONS (6)
  - ALLERGIC GRANULOMATOUS ANGIITIS [None]
  - ASTHMA [None]
  - DRUG HYPERSENSITIVITY [None]
  - PRURITUS [None]
  - PYREXIA [None]
  - RASH [None]
